FAERS Safety Report 10519941 (Version 1)
Quarter: 2014Q4

REPORT INFORMATION
  Report Type: Spontaneous
  Country: US (occurrence: None)
  Receive Date: 20141014
  Receipt Date: 20141014
  Transmission Date: 20150528
  Serious: Yes (Hospitalization)
  Sender: FDA-Public Use
  Company Number: DL2014-0760

PATIENT
  Age: 30 Year
  Sex: Female

DRUGS (3)
  1. MIFEPRISTONE TABLETS, 200 MG (DANCO LABS) [Suspect]
     Active Substance: MIFEPRISTONE
     Indication: ABORTION INDUCED
     Route: 048
     Dates: start: 20140609
  2. AZITHROMYCIN, 500 MG PO, ONCE [Concomitant]
  3. MISOPROSTOL TABLETS, 200 MCG [Suspect]
     Active Substance: MISOPROSTOL
     Route: 002
     Dates: start: 20140610, end: 20140728

REACTIONS (4)
  - Anaemia [None]
  - Haemorrhage [None]
  - Uterine haemorrhage [None]
  - Abortion incomplete [None]

NARRATIVE: CASE EVENT DATE: 20140610
